FAERS Safety Report 14176114 (Version 1)
Quarter: 2017Q4

REPORT INFORMATION
  Report Type: Report from Study
  Country: US (occurrence: US)
  Receive Date: 20171109
  Receipt Date: 20171109
  Transmission Date: 20180321
  Serious: Yes (Other)
  Sender: FDA-Public Use
  Company Number: US-ACTELION-A-NJ2017-153264

PATIENT
  Age: 58 Year
  Sex: Female

DRUGS (5)
  1. REVATIO [Concomitant]
     Active Substance: SILDENAFIL CITRATE
  2. LOSARTAN. [Concomitant]
     Active Substance: LOSARTAN
  3. FUROSEMIDE. [Concomitant]
     Active Substance: FUROSEMIDE
  4. UPTRAVI [Suspect]
     Active Substance: SELEXIPAG
     Indication: PULMONARY ARTERIAL HYPERTENSION
     Dosage: 400 MCG, BID
     Route: 048
     Dates: start: 20160919
  5. UPTRAVI [Suspect]
     Active Substance: SELEXIPAG
     Dosage: UNK
     Route: 048
     Dates: start: 20160919

REACTIONS (8)
  - Rash pruritic [Unknown]
  - Burning sensation [Unknown]
  - Rash [Unknown]
  - Abdominal discomfort [Unknown]
  - Chromaturia [Unknown]
  - Ocular icterus [Unknown]
  - Hepatic enzyme increased [Unknown]
  - Arthralgia [Unknown]
